FAERS Safety Report 18730206 (Version 1)
Quarter: 2021Q1

REPORT INFORMATION
  Report Type: Spontaneous
  Country: JP (occurrence: JP)
  Receive Date: 20210112
  Receipt Date: 20210112
  Transmission Date: 20210419
  Serious: Yes (Other)
  Sender: FDA-Public Use
  Company Number: JP-PFIZER INC-2021006588

PATIENT
  Age: 82 Year
  Sex: Male

DRUGS (1)
  1. JZOLOFT 25MG [Suspect]
     Active Substance: SERTRALINE HYDROCHLORIDE
     Dosage: UNK
     Route: 048

REACTIONS (3)
  - Paraesthesia oral [Unknown]
  - Dementia [Unknown]
  - Moaning [Unknown]
